FAERS Safety Report 5475691-7 (Version None)
Quarter: 2007Q4

REPORT INFORMATION
  Report Type: 
  Country: None (occurrence: None)
  Receive Date: 20071003
  Receipt Date: 20070924
  Transmission Date: 20080405
  Serious: Yes (Congenital Anomaly)
  Sender: FDA-Public Use
  Company Number: GB-BAYER-200711020BNE

PATIENT
  Sex: Female
  Weight: 3.328 kg

DRUGS (1)
  1. CIPROFLOXACIN [Suspect]
     Route: 064

REACTIONS (1)
  - ABNORMAL PALMAR/PLANTAR CREASES [None]
